FAERS Safety Report 8864821 (Version 1)
Quarter: 2012Q4

REPORT INFORMATION
  Report Type: 
  Country: US (occurrence: US)
  Receive Date: 20121024
  Receipt Date: 20121024
  Transmission Date: 20130627
  Serious: No
  Sender: FDA-Public Use
  Company Number: US-AMGEN-USASP2011069461

PATIENT
  Age: 56 Year
  Sex: Female
  Weight: 65.31 kg

DRUGS (11)
  1. ENBREL [Suspect]
     Indication: PRODUCT USED FOR UNKNOWN INDICATION
     Dosage: 25 mg, 2 times/wk
  2. HUMALOG [Concomitant]
     Dosage: 100 UNK, UNK
  3. ZOCOR [Concomitant]
     Dosage: 20 mg, UNK
  4. CELEBREX [Concomitant]
     Dosage: 50 mg, UNK
  5. LANTUS [Concomitant]
  6. ATENOLOL [Concomitant]
     Dosage: 25 mg, UNK
  7. LOVAZA [Concomitant]
     Dosage: 1 g, UNK
  8. HYDROCODONE W/APAP [Concomitant]
     Dosage: UNK
  9. PLAVIX [Concomitant]
     Dosage: 75 mg, UNK
  10. CELEXA                             /00582602/ [Concomitant]
     Dosage: 10 mg, UNK
  11. ZOLPIDEM                           /00914902/ [Concomitant]
     Dosage: 12.5 mg, UNK

REACTIONS (5)
  - Productive cough [Unknown]
  - Respiratory tract congestion [Unknown]
  - Fatigue [Unknown]
  - Pain [Unknown]
  - Blood glucose increased [Unknown]
